FAERS Safety Report 5077933-9 (Version None)
Quarter: 2006Q3

REPORT INFORMATION
  Report Type: 
  Country: None (occurrence: None)
  Receive Date: 20060808
  Receipt Date: 20060728
  Transmission Date: 20061208
  Serious: Yes (Congenital Anomaly)
  Sender: FDA-Public Use
  Company Number: GXKR2006GB04369

PATIENT
  Age: 6 Month
  Sex: Male
  Weight: 4.3 kg

DRUGS (3)
  1. AMOXICILLIN [Suspect]
     Dosage: TRANSPLACENTAL
     Route: 064
  2. CLARITHROMYCIN [Suspect]
     Dosage: TRANSPLACENTAL
     Route: 064
  3. LANSOPRAZOLE (NGX) (LANSOPRAZOLE) [Suspect]
     Dosage: TRANSPLACENTAL
     Route: 064

REACTIONS (2)
  - ANKYLOGLOSSIA CONGENITAL [None]
  - DRUG EXPOSURE DURING PREGNANCY [None]
